FAERS Safety Report 9119543 (Version 1)
Quarter: 2013Q1

REPORT INFORMATION
  Report Type: Report from Study
  Country: JP (occurrence: JP)
  Receive Date: 20130207
  Receipt Date: 20130207
  Transmission Date: 20140127
  Serious: Yes (Other)
  Sender: FDA-Public Use
  Company Number: JP-JNJFOC-20130202571

PATIENT
  Age: 57 Year
  Sex: Female
  Weight: 45 kg

DRUGS (13)
  1. REMICADE [Suspect]
     Indication: RHEUMATOID ARTHRITIS
     Route: 042
     Dates: start: 20090818
  2. REMICADE [Suspect]
     Indication: RHEUMATOID ARTHRITIS
     Route: 042
     Dates: start: 20110125
  3. REMICADE [Suspect]
     Indication: RHEUMATOID ARTHRITIS
     Route: 042
     Dates: start: 20110315
  4. REMICADE [Suspect]
     Indication: RHEUMATOID ARTHRITIS
     Route: 042
     Dates: start: 20110705
  5. REMICADE [Suspect]
     Indication: RHEUMATOID ARTHRITIS
     Dosage: 16TH INFUSION
     Route: 042
     Dates: start: 20110830
  6. RHEUMATREX [Suspect]
     Indication: PRODUCT USED FOR UNKNOWN INDICATION
     Route: 048
  7. PREDNISOLONE [Suspect]
     Indication: PRODUCT USED FOR UNKNOWN INDICATION
     Route: 048
  8. SELBEX [Concomitant]
     Indication: PROPHYLAXIS
     Route: 048
  9. BONALON [Concomitant]
     Indication: PROPHYLAXIS
     Route: 048
  10. CELECOX [Concomitant]
     Indication: RHEUMATOID ARTHRITIS
     Route: 048
  11. TAKEPRON [Concomitant]
     Indication: PROPHYLAXIS
     Route: 048
  12. ULCERLMIN [Concomitant]
     Indication: PROPHYLAXIS
     Route: 048
     Dates: start: 20110704
  13. SELTOUCH [Concomitant]
     Indication: RHEUMATOID ARTHRITIS

REACTIONS (1)
  - Atypical mycobacterial infection [Recovering/Resolving]
